FAERS Safety Report 20072864 (Version 5)
Quarter: 2022Q1

REPORT INFORMATION
  Report Type: Report from Study
  Country: JP (occurrence: JP)
  Receive Date: 20211116
  Receipt Date: 20220209
  Transmission Date: 20220424
  Serious: Yes (Life-Threatening, Hospitalization, Other)
  Sender: FDA-Public Use
  Company Number: JP-ABBVIE-21K-087-4159931-00

PATIENT
  Sex: Female
  Weight: 65 kg

DRUGS (4)
  1. RINVOQ [Suspect]
     Active Substance: UPADACITINIB
     Indication: Rheumatoid arthritis
     Route: 048
     Dates: start: 20210630, end: 20211110
  2. PREDNISOLONE [Concomitant]
     Active Substance: PREDNISOLONE
     Indication: Product used for unknown indication
     Route: 048
     Dates: start: 20211110
  3. FERROUS FUMARATE [Concomitant]
     Active Substance: FERROUS FUMARATE
     Indication: Product used for unknown indication
     Route: 048
     Dates: start: 20211110
  4. MOSAPRIDE CITRATE DIHYDRATE [Concomitant]
     Active Substance: MOSAPRIDE CITRATE DIHYDRATE
     Indication: Product used for unknown indication
     Dates: start: 20211220

REACTIONS (11)
  - Gastric cancer [Recovered/Resolved]
  - Adenocarcinoma [Unknown]
  - Pancreatic carcinoma [Recovered/Resolved]
  - Gastrectomy [Unknown]
  - Hospitalisation [Unknown]
  - Metastases to lymph nodes [Unknown]
  - Lymphadenopathy [Unknown]
  - Anaemia [Unknown]
  - Ulcer [Unknown]
  - Gastrointestinal disorder [Unknown]
  - Periodontal disease [Unknown]

NARRATIVE: CASE EVENT DATE: 20210101
